FAERS Safety Report 9901267 (Version 2)
Quarter: 2014Q1

REPORT INFORMATION
  Report Type: Spontaneous
  Country: JP (occurrence: JP)
  Receive Date: 20140217
  Receipt Date: 20140311
  Transmission Date: 20141002
  Serious: Yes (Other)
  Sender: FDA-Public Use
  Company Number: JP-BANPHARM-20142166

PATIENT
  Age: 10 Year
  Sex: Female
  Weight: 28.7 kg

DRUGS (4)
  1. ZONISAMIDE UNKNOWN PRODUCT [Suspect]
     Indication: EPILEPSY
  2. VALPROIC ACID [Concomitant]
  3. PHENOBARBITAL [Concomitant]
  4. CLONAZEPAM [Concomitant]

REACTIONS (6)
  - Hydronephrosis [Recovered/Resolved]
  - Calculus ureteric [Recovered/Resolved]
  - Haematuria [Recovered/Resolved]
  - Crystalluria [Recovered/Resolved]
  - Renal impairment [Recovered/Resolved]
  - Nephrolithiasis [Recovered/Resolved]
